FAERS Safety Report 6735461-6 (Version None)
Quarter: 2010Q2

REPORT INFORMATION
  Report Type: 
  Country: None (occurrence: None)
  Receive Date: 20100521
  Receipt Date: 20100518
  Transmission Date: 20101027
  Serious: Yes (Death)
  Sender: FDA-Public Use
  Company Number: PHHY2010US32243

PATIENT
  Sex: Female

DRUGS (10)
  1. RECLAST [Suspect]
     Indication: OSTEOPOROSIS POSTMENOPAUSAL
     Dosage: 5 MG
     Route: 042
     Dates: start: 20090720
  2. AGGRENOX [Concomitant]
  3. DENAVIR [Concomitant]
  4. ALTACE [Concomitant]
  5. LEXAPRO [Concomitant]
  6. EXELON [Concomitant]
  7. NAMENDA [Concomitant]
  8. PROTONIX [Concomitant]
  9. ZETIA [Concomitant]
  10. DIPYRIDAMOLE [Concomitant]

REACTIONS (1)
  - ARTERIOSCLEROSIS [None]
